FAERS Safety Report 13818848 (Version 2)
Quarter: 2018Q1

REPORT INFORMATION
  Report Type: Report from Study
  Country: US (occurrence: US)
  Receive Date: 20170731
  Receipt Date: 20180201
  Transmission Date: 20180508
  Serious: No
  Sender: FDA-Public Use
  Company Number: US-EXELIXIS-CABO-17008994

PATIENT
  Sex: Male

DRUGS (12)
  1. CABOMETYX [Suspect]
     Active Substance: CABOZANTINIB S-MALATE
     Indication: RENAL CANCER
     Dosage: 60 MG, QD
     Route: 048
     Dates: start: 20170111, end: 2017
  2. ATORVASTATIN CALCIUM. [Concomitant]
     Active Substance: ATORVASTATIN CALCIUM
  3. OMEPRAZOLE. [Concomitant]
     Active Substance: OMEPRAZOLE
  4. CENTRUM SILVER [Concomitant]
     Active Substance: MINERALS\VITAMINS
  5. CABOMETYX [Suspect]
     Active Substance: CABOZANTINIB S-MALATE
     Indication: BONE NEOPLASM
     Dosage: 40 MG, QD
     Route: 048
     Dates: start: 2017
  6. ONDANSETRON [Concomitant]
     Active Substance: ONDANSETRON
  7. CABOMETYX [Suspect]
     Active Substance: CABOZANTINIB S-MALATE
     Indication: PLASMA CELL MYELOMA
  8. LOSARTAN. [Concomitant]
     Active Substance: LOSARTAN
  9. PRESERVISION [Concomitant]
     Active Substance: MINERALS\VITAMINS
  10. PHENERGAN [Concomitant]
     Active Substance: PROMETHAZINE HYDROCHLORIDE
  11. AREDSAN [Concomitant]
  12. IBUPROFEN. [Concomitant]
     Active Substance: IBUPROFEN

REACTIONS (4)
  - Bone pain [Recovering/Resolving]
  - Drug intolerance [Unknown]
  - Arthralgia [Not Recovered/Not Resolved]
  - Glossitis [Recovering/Resolving]
